FAERS Safety Report 10956709 (Version 1)
Quarter: 2015Q1

REPORT INFORMATION
  Report Type: Spontaneous
  Country: GB (occurrence: None)
  Receive Date: 20150324
  Receipt Date: 20150324
  Transmission Date: 20150721
  Serious: Yes (Hospitalization)
  Sender: FDA-Public Use
  Company Number: FK201501332

PATIENT
  Age: 75 Year
  Sex: Female

DRUGS (2)
  1. ACICLOVIR (MANUFACTURER UNKNOWN) (ACICLOVIR) (ACICLOVIR) [Suspect]
     Active Substance: ACYCLOVIR
     Indication: ORAL HERPES
     Dosage: 200 MG, 5 IN 1 D, ORAL
     Route: 048
  2. ACICLOVIR (MANUFACTURER UNKNOWN) (ACICLOVIR) (ACICLOVIR) [Suspect]
     Active Substance: ACYCLOVIR
     Indication: HERPES SIMPLEX ENCEPHALITIS
     Dosage: 200 MG, 5 IN 1 D, ORAL
     Route: 048

REACTIONS (9)
  - Balance disorder [None]
  - Neurotoxicity [None]
  - Confusional state [None]
  - Lymphocyte count decreased [None]
  - Hallucination, visual [None]
  - Blood sodium decreased [None]
  - Myoclonus [None]
  - Acute kidney injury [None]
  - Polyuria [None]
